FAERS Safety Report 5510407-7 (Version None)
Quarter: 2007Q4

REPORT INFORMATION
  Report Type: 
  Country: None (occurrence: None)
  Receive Date: 20071108
  Receipt Date: 20071027
  Transmission Date: 20080405
  Serious: Yes (Other)
  Sender: FDA-Public Use
  Company Number: US-PFIZER INC-2007071348

PATIENT
  Sex: Female
  Weight: 49.9 kg

DRUGS (4)
  1. LYRICA [Suspect]
     Indication: FIBROMYALGIA
     Route: 048
     Dates: start: 20070724, end: 20070805
  2. MORPHINE SULFATE [Concomitant]
  3. KLONOPIN [Concomitant]
  4. LEXAPRO [Concomitant]

REACTIONS (17)
  - ALLODYNIA [None]
  - ASTHENIA [None]
  - DISSOCIATION [None]
  - DIZZINESS [None]
  - DYSKINESIA [None]
  - DYSURIA [None]
  - FALL [None]
  - FATIGUE [None]
  - FEELING ABNORMAL [None]
  - HYPOAESTHESIA [None]
  - HYPOTENSION [None]
  - MUSCULAR WEAKNESS [None]
  - MUSCULOSKELETAL STIFFNESS [None]
  - SCREAMING [None]
  - SLUGGISHNESS [None]
  - SOMNOLENCE [None]
  - VISION BLURRED [None]
